FAERS Safety Report 17507081 (Version 2)
Quarter: 2021Q1

REPORT INFORMATION
  Report Type: Spontaneous
  Country: US (occurrence: US)
  Receive Date: 20200305
  Receipt Date: 20210226
  Transmission Date: 20210419
  Serious: No
  Sender: FDA-Public Use
  Company Number: US-ROCHE-2501765

PATIENT
  Age: 19 Year
  Sex: Male

DRUGS (2)
  1. XOLAIR [Suspect]
     Active Substance: OMALIZUMAB
     Indication: URTICARIA
     Dosage: FORM STRENGTH: 150 MG/ML SD PRE?FILLED SYRINGE
     Route: 058
     Dates: start: 20191120
  2. XOLAIR [Suspect]
     Active Substance: OMALIZUMAB
     Route: 058
     Dates: start: 20191119

REACTIONS (4)
  - Semen volume decreased [Unknown]
  - Lack of satiety [Unknown]
  - Nausea [Unknown]
  - Alopecia [Unknown]

NARRATIVE: CASE EVENT DATE: 20191201
